FAERS Safety Report 17942401 (Version 1)
Quarter: 2020Q2

REPORT INFORMATION
  Report Type: Spontaneous
  Country: US (occurrence: US)
  Receive Date: 20200625
  Receipt Date: 20200625
  Transmission Date: 20200714
  Serious: No
  Sender: FDA-Public Use
  Company Number: US-ACCORD-170448

PATIENT
  Age: 18 Year
  Sex: Female

DRUGS (8)
  1. IMURAN [Concomitant]
     Active Substance: AZATHIOPRINE
     Indication: LIVER TRANSPLANT
     Dosage: DAILY
     Dates: start: 20200101
  2. MYCOPHENOLIC ACID. [Suspect]
     Active Substance: MYCOPHENOLIC ACID
     Indication: LIVER TRANSPLANT
     Dosage: 750 MG BID, DAILY DOSE AS 1500 MG
     Route: 048
     Dates: start: 20070817, end: 20200105
  3. PREDNISONE. [Concomitant]
     Active Substance: PREDNISONE
     Indication: LIVER TRANSPLANT
     Dosage: EVERY OTHER DAY, PRIOR TO PREGNANCY
     Dates: start: 20070817
  4. AMLODIPINE [Concomitant]
     Active Substance: AMLODIPINE BESYLATE
     Indication: LIVER TRANSPLANT
     Dosage: DAILY, PRIOR TO PREGNANCY
     Dates: start: 20070817
  5. ACICLOVIR [Concomitant]
     Active Substance: ACYCLOVIR
     Indication: LIVER TRANSPLANT
     Dates: start: 2019
  6. LANSOPRAZOLE. [Concomitant]
     Active Substance: LANSOPRAZOLE
     Indication: GASTROOESOPHAGEAL REFLUX DISEASE
     Dosage: DAILY MONDAY TO FRIDAY, PRIOR TO PREGNANCY
  7. TACROLIMUS. [Concomitant]
     Active Substance: TACROLIMUS
     Indication: LIVER TRANSPLANT
     Dosage: BID, PRIOR TO BECAME PREGNANT
     Dates: start: 20070817
  8. VALACICLOVIR [Concomitant]
     Active Substance: VALACYCLOVIR HYDROCHLORIDE
     Indication: HERPES SIMPLEX
     Dosage: DAILY
     Dates: start: 2019

REACTIONS (1)
  - Maternal exposure during pregnancy [Unknown]

NARRATIVE: CASE EVENT DATE: 20200104
